FAERS Safety Report 15920945 (Version 4)
Quarter: 2025Q1

REPORT INFORMATION
  Report Type: Report from Study
  Country: BE (occurrence: BE)
  Receive Date: 20190205
  Receipt Date: 20250220
  Transmission Date: 20250409
  Serious: Yes (Hospitalization)
  Sender: PFIZER
  Company Number: BE-PFIZER INC-2019051660

PATIENT
  Age: 49 Year
  Sex: Male
  Weight: 81.5 kg

DRUGS (12)
  1. METHOTREXATE SODIUM [Suspect]
     Active Substance: METHOTREXATE SODIUM
     Indication: Acute lymphocytic leukaemia
     Route: 048
     Dates: start: 20180724, end: 20191213
  2. MEDROL [Suspect]
     Active Substance: METHYLPREDNISOLONE
     Indication: Acute lymphocytic leukaemia
     Dates: start: 20180724
  3. MEDROL [Suspect]
     Active Substance: METHYLPREDNISOLONE
     Dates: start: 20190108, end: 20190114
  4. VINDESINE [Suspect]
     Active Substance: VINDESINE
     Indication: Acute lymphocytic leukaemia
     Route: 043
     Dates: start: 20180724
  5. VINDESINE [Suspect]
     Active Substance: VINDESINE
     Route: 043
     Dates: start: 20190108, end: 20190108
  6. MERCAPTOPURINE [Suspect]
     Active Substance: MERCAPTOPURINE
     Indication: Acute lymphocytic leukaemia
     Dosage: 100 MG, 2X/DAY, 2 TABLETS PER DAY FOR 24 MONTHS
     Dates: start: 20180724, end: 20191213
  7. KEFZOL [Concomitant]
     Active Substance: CEFAZOLIN SODIUM
  8. SODIUM CHLORIDE [Concomitant]
     Active Substance: SODIUM CHLORIDE
  9. PREDNISONE [Concomitant]
     Active Substance: PREDNISONE
     Dates: start: 20190108, end: 20190114
  10. ACTRAPID [Concomitant]
     Active Substance: INSULIN HUMAN
  11. TRAMADOL HYDROCHLORIDE [Concomitant]
     Active Substance: TRAMADOL HYDROCHLORIDE
  12. DAFALGAN [Concomitant]
     Active Substance: ACETAMINOPHEN

REACTIONS (2)
  - Erysipelas [Recovered/Resolved]
  - Lymphangitis [Recovered/Resolved]

NARRATIVE: CASE EVENT DATE: 20190112
